FAERS Safety Report 12823242 (Version 1)
Quarter: 2016Q4

REPORT INFORMATION
  Report Type: Spontaneous
  Country: US (occurrence: US)
  Receive Date: 20161006
  Receipt Date: 20161006
  Transmission Date: 20170207
  Serious: No
  Sender: FDA-Public Use
  Company Number: None

PATIENT
  Age: 62 Year
  Sex: Female

DRUGS (5)
  1. SUTENT [Suspect]
     Active Substance: SUNITINIB MALATE
     Indication: MALIGNANT CONNECTIVE TISSUE NEOPLASM
     Dosage: 50 MG QD FOR 28 DAYS ORAL
     Route: 048
     Dates: start: 20160811
  2. SUTENT [Suspect]
     Active Substance: SUNITINIB MALATE
     Indication: DRUG THERAPY
     Dosage: 50 MG QD FOR 28 DAYS ORAL
     Route: 048
     Dates: start: 20160811
  3. SUTENT [Suspect]
     Active Substance: SUNITINIB MALATE
     Indication: SOFT TISSUE SARCOMA
     Dosage: 50 MG QD FOR 28 DAYS ORAL
     Route: 048
     Dates: start: 20160811
  4. SUTENT [Suspect]
     Active Substance: SUNITINIB MALATE
     Indication: HYPERTENSIVE HEART DISEASE
     Dosage: 50 MG QD FOR 28 DAYS ORAL
     Route: 048
     Dates: start: 20160811
  5. SUTENT [Suspect]
     Active Substance: SUNITINIB MALATE
     Indication: NAUSEA
     Dosage: 50 MG QD FOR 28 DAYS ORAL
     Route: 048
     Dates: start: 20160811

REACTIONS (3)
  - Nausea [None]
  - Stomatitis [None]
  - Vomiting [None]

NARRATIVE: CASE EVENT DATE: 20160916
